FAERS Safety Report 19862492 (Version 1)
Quarter: 2021Q3

REPORT INFORMATION
  Report Type: Spontaneous
  Country: US (occurrence: US)
  Receive Date: 20210921
  Receipt Date: 20210921
  Transmission Date: 20211014
  Serious: Yes (Other)
  Sender: FDA-Public Use
  Company Number: US-GILEAD-2021-0548913

PATIENT
  Age: 64 Year
  Sex: Male

DRUGS (2)
  1. REMDESIVIR. [Suspect]
     Active Substance: REMDESIVIR
     Indication: COVID-19
     Dosage: 200 MG, DAY 41?45.
     Route: 065
  2. CONVALESCENT PLASMA COVID?19 [Concomitant]
     Active Substance: COVID-19 CONVALESCENT PLASMA

REACTIONS (2)
  - Off label use [Unknown]
  - COVID-19 pneumonia [Unknown]
